FAERS Safety Report 4592518-6 (Version None)
Quarter: 2005Q1

REPORT INFORMATION
  Report Type: 
  Country: None (occurrence: None)
  Receive Date: 20050222
  Receipt Date: 20050209
  Transmission Date: 20050727
  Serious: Yes (Other)
  Sender: FDA-Public Use
  Company Number: 2005029736

PATIENT
  Age: 50 Year
  Sex: Female

DRUGS (2)
  1. CELEBREX [Suspect]
     Indication: BILIARY COLIC
  2. ANTITHROMBOTIC AGENTS ( ANTITHROMBOTIC AGENTS) [Suspect]
     Indication: ILL-DEFINED DISORDER

REACTIONS (7)
  - ABDOMINAL PAIN [None]
  - DRUG INTERACTION [None]
  - HAEMATURIA [None]
  - HAEMOBILIA [None]
  - INTERNATIONAL NORMALISED RATIO INCREASED [None]
  - RETROPERITONEAL HAEMORRHAGE [None]
  - URINARY BLADDER HAEMORRHAGE [None]
